FAERS Safety Report 8144535-7 (Version None)
Quarter: 2012Q1

REPORT INFORMATION
  Report Type: 
  Country: None (occurrence: None)
  Receive Date: 20120217
  Receipt Date: 20120207
  Transmission Date: 20120608
  Serious: Yes (Hospitalization, Other)
  Sender: FDA-Public Use
  Company Number: BR-ROCHE-708636

PATIENT
  Age: 30 Year
  Sex: Female
  Weight: 61 kg

DRUGS (1)
  1. ISOTRETINOIN [Suspect]
     Indication: ACNE
     Dosage: FREQUENCY: 1 CAPSULE PER DAY, 2 CAPSULES THE OTHER DAY; DRUG WAS DISCONTINUED FOR 3 DAYS
     Route: 048

REACTIONS (13)
  - HAEMORRHOIDS [None]
  - HEADACHE [None]
  - WEIGHT DECREASED [None]
  - CONSTIPATION [None]
  - DEPRESSION [None]
  - THERAPEUTIC RESPONSE DECREASED [None]
  - FEELING OF DESPAIR [None]
  - ANAL FISSURE [None]
  - DIARRHOEA [None]
  - DRY MOUTH [None]
  - ABDOMINAL PAIN UPPER [None]
  - VOMITING [None]
  - ACNE [None]
